FAERS Safety Report 6591103-4 (Version None)
Quarter: 2010Q1

REPORT INFORMATION
  Report Type: 
  Country: None (occurrence: None)
  Receive Date: 20100219
  Receipt Date: 20100119
  Transmission Date: 20100710
  Serious: No
  Sender: FDA-Public Use
  Company Number: US-BAYER-200942864NA

PATIENT
  Age: 66 Year
  Sex: Male

DRUGS (5)
  1. LEVITRA [Suspect]
     Indication: DRUG USE FOR UNKNOWN INDICATION
     Dates: start: 20050101
  2. CIALIS [Concomitant]
  3. CIALIS [Concomitant]
  4. VIAGRA [Concomitant]
  5. COZAAR [Concomitant]

REACTIONS (1)
  - DRUG INEFFECTIVE [None]
